FAERS Safety Report 25742347 (Version 2)
Quarter: 2025Q3

REPORT INFORMATION
  Report Type: Spontaneous
  Country: EG (occurrence: EG)
  Receive Date: 20250829
  Receipt Date: 20250911
  Transmission Date: 20251020
  Serious: Yes (Life-Threatening, Other)
  Sender: NOVO NORDISK
  Company Number: EG-NOVOPROD-1505141

PATIENT
  Age: 822 Month
  Sex: Female
  Weight: 76 kg

DRUGS (8)
  1. MIXTARD HUMAN 70/30 [Suspect]
     Active Substance: INSULIN HUMAN
     Indication: Diabetes mellitus
     Route: 058
     Dates: start: 2004, end: 202404
  2. ASPIRIN [Concomitant]
     Active Substance: ASPIRIN
     Indication: Anticoagulant therapy
     Route: 048
  3. BISOPROLOL FUMARATE [Concomitant]
     Active Substance: BISOPROLOL FUMARATE
     Indication: Heart rate irregular
     Route: 048
  4. EMPACOZA [Concomitant]
     Indication: Diabetes mellitus
     Route: 048
  5. CRESTOR [Concomitant]
     Active Substance: ROSUVASTATIN CALCIUM
     Indication: Low density lipoprotein abnormal
  6. CRESTOR [Concomitant]
     Active Substance: ROSUVASTATIN CALCIUM
     Indication: Blood triglycerides abnormal
     Route: 048
  7. TICAGRELOR [Concomitant]
     Active Substance: TICAGRELOR
     Indication: Anticoagulant therapy
     Route: 048
  8. BENFOTIAMINE\CYANOCOBALAMIN\PYRIDOXINE HYDROCHLORIDE [Concomitant]
     Active Substance: BENFOTIAMINE\CYANOCOBALAMIN\PYRIDOXINE HYDROCHLORIDE
     Indication: Vitamin supplementation
     Route: 048

REACTIONS (2)
  - Coronavirus infection [Unknown]
  - Retinal disorder [Unknown]

NARRATIVE: CASE EVENT DATE: 20220101
